FAERS Safety Report 8540287-7 (Version None)
Quarter: 2012Q3

REPORT INFORMATION
  Report Type: 
  Country: None (occurrence: None)
  Receive Date: 20120726
  Receipt Date: 20120719
  Transmission Date: 20120928
  Serious: Yes (Other)
  Sender: FDA-Public Use
  Company Number: FR-ROCHE-1090502

PATIENT
  Age: 17 Year
  Sex: Female

DRUGS (2)
  1. ISOTRETINOIN [Suspect]
     Dates: end: 20051014
  2. ISOTRETINOIN [Suspect]
     Indication: ACNE
     Route: 048
     Dates: start: 20050103

REACTIONS (5)
  - SUICIDE ATTEMPT [None]
  - DRY SKIN [None]
  - VERTIGO [None]
  - MUSCULOSKELETAL PAIN [None]
  - TRICHOTILLOMANIA [None]
